FAERS Safety Report 9412720 (Version 1)
Quarter: 2013Q3

REPORT INFORMATION
  Report Type: Report from Study
  Country: US (occurrence: US)
  Receive Date: 20130722
  Receipt Date: 20130722
  Transmission Date: 20140515
  Serious: No
  Sender: FDA-Public Use
  Company Number: US-PFIZER INC-2013200364

PATIENT
  Age: 46 Year
  Sex: Female
  Weight: 69.09 kg

DRUGS (6)
  1. BLINDED CELECOXIB [Suspect]
     Indication: ADENOCARCINOMA OF COLON
     Dosage: 400 MG PO QD STARTING ON DAY 1 CYCLE 2 OF FOLFOX CONTINUED TO 3 YEARS
     Route: 048
     Dates: start: 20130326
  2. BLINDED PLACEBO [Suspect]
     Indication: ADENOCARCINOMA OF COLON
     Dosage: 400 MG PO QD STARTING ON DAY 1 CYCLE 2 OF FOLFOX CONTINUED TO 3 YEARS
     Route: 048
     Dates: start: 20130326
  3. FLUOROURACIL [Suspect]
     Indication: ADENOCARCINOMA OF COLON
     Dosage: 400 MG/M2, ROUTE: IVP, ON DAY 1
     Route: 042
     Dates: start: 20130326
  4. FLUOROURACIL [Suspect]
     Dosage: 2400 MG/M2, OVER 46-48 HOURS ON DAY 1
     Route: 042
     Dates: start: 20130326
  5. OXALIPLATIN [Suspect]
     Indication: ADENOCARCINOMA OF COLON
     Dosage: 85 MG/M2, OVER 2 HOURS ON DAY 1
     Route: 042
     Dates: start: 20130326
  6. LEUCOVORIN CALCIUM [Suspect]
     Dosage: 400 MG/M2, OVER 2 HOURS ON DAY 1
     Route: 042
     Dates: start: 20130326

REACTIONS (1)
  - Neutrophil count decreased [Recovered/Resolved]
